FAERS Safety Report 17918121 (Version 1)
Quarter: 2020Q2

REPORT INFORMATION
  Report Type: Spontaneous
  Country: US (occurrence: US)
  Receive Date: 20200619
  Receipt Date: 20200619
  Transmission Date: 20200714
  Serious: Yes (Hospitalization, Other)
  Sender: FDA-Public Use
  Company Number: US-PFIZER INC-2020237960

PATIENT
  Age: 92 Year
  Sex: Female
  Weight: 50.8 kg

DRUGS (9)
  1. TYLENOL [Concomitant]
     Active Substance: ACETAMINOPHEN
     Dosage: UNK (STARTED WHEN SHE HAD HER HIP REPLACED)
  2. LISINOPRIL. [Concomitant]
     Active Substance: LISINOPRIL
     Indication: CARDIAC FAILURE CONGESTIVE
     Dosage: 5 MG, 1X/DAY (5 MG ONCE A DAY BY MOUTH)
     Route: 048
     Dates: start: 2015
  3. LISINOPRIL. [Concomitant]
     Active Substance: LISINOPRIL
     Indication: BLOOD PRESSURE ABNORMAL
  4. ATIVAN [Concomitant]
     Active Substance: LORAZEPAM
     Indication: ANXIETY
     Dosage: 0.3 MG, 1X/DAY (0.3MG ONCE A DAY BY MOUTH)
     Route: 048
  5. PREMARIN [Suspect]
     Active Substance: ESTROGENS, CONJUGATED
     Indication: BONE DENSITY ABNORMAL
     Dosage: .0625MG, 1X/DAY (0.0625 MG ONCE A DAY BY MOUTH)
     Route: 048
     Dates: end: 202005
  6. TENORMIN [Concomitant]
     Active Substance: ATENOLOL
     Indication: BLOOD PRESSURE ABNORMAL
     Dosage: UNK, 1X/DAY (TAKES 20 OR 25MG ONCE A DAY BY MOUTH)
     Route: 048
  7. POTASSIUM [Concomitant]
     Active Substance: POTASSIUM
     Indication: BLOOD POTASSIUM ABNORMAL
     Dosage: 10 MG, 1X/DAY (10 MG ONCE A DAY BY MOUTH)
     Route: 048
     Dates: start: 2020
  8. LISINOPRIL. [Concomitant]
     Active Substance: LISINOPRIL
     Indication: CARDIAC DISORDER
  9. LASIX [Concomitant]
     Active Substance: FUROSEMIDE
     Indication: OEDEMA PERIPHERAL
     Dosage: 40 MG, 1X/DAY (40MG ONCE A DAY BY MOUTH)
     Route: 048

REACTIONS (6)
  - Fall [Unknown]
  - Wrong dose [Unknown]
  - Gait inability [Unknown]
  - Cellulitis [Unknown]
  - Condition aggravated [Unknown]
  - Oedema peripheral [Unknown]

NARRATIVE: CASE EVENT DATE: 20200501
